FAERS Safety Report 9129798 (Version 1)
Quarter: 2013Q1

REPORT INFORMATION
  Report Type: Spontaneous
  Country: US (occurrence: US)
  Receive Date: 20130228
  Receipt Date: 20130228
  Transmission Date: 20140127
  Serious: Yes (Other)
  Sender: FDA-Public Use
  Company Number: US-SANOFI-AVENTIS-2013SA019348

PATIENT
  Age: 78 Year
  Sex: Male

DRUGS (3)
  1. LANTUS SOLOSTAR [Suspect]
     Indication: TYPE 1 DIABETES MELLITUS
     Dosage: 16 TO 22 UNITS
     Route: 051
  2. SOLOSTAR [Suspect]
     Indication: TYPE 1 DIABETES MELLITUS
  3. HUMALOG [Concomitant]

REACTIONS (3)
  - Cataract operation [Unknown]
  - Blood glucose decreased [Unknown]
  - Overdose [Unknown]
